FAERS Safety Report 10005943 (Version 1)
Quarter: 2014Q1

REPORT INFORMATION
  Report Type: Spontaneous
  Country: NL (occurrence: NL)
  Receive Date: 20140313
  Receipt Date: 20140313
  Transmission Date: 20141002
  Serious: Yes (Other)
  Sender: FDA-Public Use
  Company Number: PHHY2014NL028860

PATIENT
  Age: 69 Year
  Sex: Female

DRUGS (2)
  1. NILOTINIB [Suspect]
     Indication: CHRONIC MYELOID LEUKAEMIA
     Dosage: 400 MG, BID
     Route: 048
  2. NILOTINIB [Suspect]
     Dosage: 400 MG, QD
     Route: 048

REACTIONS (7)
  - Cerebrovascular accident [Unknown]
  - Aphasia [Unknown]
  - Epilepsy [Unknown]
  - Angina pectoris [Unknown]
  - Coronary artery stenosis [Unknown]
  - Intermittent claudication [Unknown]
  - Hyperglycaemia [Unknown]
